FAERS Safety Report 24065632 (Version 10)
Quarter: 2025Q1

REPORT INFORMATION
  Report Type: Report from Study
  Country: GB (occurrence: GB)
  Receive Date: 20240709
  Receipt Date: 20250113
  Transmission Date: 20250409
  Serious: Yes (Hospitalization, Other)
  Sender: ABBVIE
  Company Number: GB-ABBVIE-5827718

PATIENT
  Age: 69 Year
  Sex: Female

DRUGS (1)
  1. SKYRIZI [Suspect]
     Active Substance: RISANKIZUMAB-RZAA
     Indication: Crohn^s disease
     Dosage: LAST ADMINISTRATION DATE: 2024
     Route: 058
     Dates: start: 20240508

REACTIONS (32)
  - Anxiety [Unknown]
  - COVID-19 [Unknown]
  - General physical health deterioration [Unknown]
  - Crohn^s disease [Unknown]
  - Device issue [Unknown]
  - Device issue [Unknown]
  - Sepsis [Unknown]
  - Pulmonary thrombosis [Unknown]
  - Nausea [Unknown]
  - Chromaturia [Unknown]
  - Contusion [Unknown]
  - Mobility decreased [Unknown]
  - Discomfort [Unknown]
  - Fall [Unknown]
  - Back pain [Unknown]
  - Constipation [Unknown]
  - Dysuria [Unknown]
  - Emotional disorder [Unknown]
  - Pollakiuria [Unknown]
  - Diarrhoea [Not Recovered/Not Resolved]
  - Accidental overdose [Unknown]
  - Feeding disorder [Unknown]
  - Depressed mood [Unknown]
  - Urinary tract infection [Unknown]
  - Pain [Unknown]
  - Wrong technique in product usage process [Unknown]
  - Fatigue [Unknown]
  - Confusional state [Unknown]
  - Finger deformity [Unknown]
  - Abdominal pain [Unknown]
  - Peripheral swelling [Unknown]
  - Fine motor skill dysfunction [Unknown]

NARRATIVE: CASE EVENT DATE: 20240101
